FAERS Safety Report 5635553-9 (Version None)
Quarter: 2008Q1

REPORT INFORMATION
  Report Type: 
  Country: None (occurrence: None)
  Receive Date: 20080222
  Receipt Date: 20080211
  Transmission Date: 20080703
  Serious: Yes (Other)
  Sender: FDA-Public Use
  Company Number: US-PFIZER INC-2008015074

PATIENT
  Sex: Female

DRUGS (7)
  1. NEURONTIN [Suspect]
     Indication: MULTIPLE SCLEROSIS
  2. DITROPAN [Suspect]
     Indication: INCONTINENCE
  3. REBIF [Suspect]
     Indication: MULTIPLE SCLEROSIS
     Route: 058
     Dates: start: 20060426, end: 20070526
  4. PROVIGIL [Suspect]
     Indication: FATIGUE
  5. CRESTOR [Suspect]
     Indication: BLOOD CHOLESTEROL INCREASED
  6. CRESTOR [Suspect]
     Indication: DIABETES MELLITUS
  7. GLUCOVANCE [Suspect]
     Indication: DIABETES MELLITUS

REACTIONS (2)
  - CAESAREAN SECTION [None]
  - FOETAL MOVEMENTS DECREASED [None]
